FAERS Safety Report 8186092-5 (Version None)
Quarter: 2012Q1

REPORT INFORMATION
  Report Type: 
  Country: None (occurrence: None)
  Receive Date: 20120306
  Receipt Date: 20120229
  Transmission Date: 20120608
  Serious: No
  Sender: FDA-Public Use
  Company Number: US-BIOGENIDEC-2012BI007603

PATIENT
  Sex: Female

DRUGS (3)
  1. TYSABRI [Suspect]
     Indication: MULTIPLE SCLEROSIS
     Route: 042
     Dates: start: 20080929
  2. AMPYRA [Concomitant]
     Indication: GAIT DISTURBANCE
     Dates: start: 20100101
  3. DETROL [Concomitant]
     Indication: NEUROGENIC BLADDER

REACTIONS (6)
  - MUSCULAR WEAKNESS [None]
  - BALANCE DISORDER [None]
  - BLADDER DISORDER [None]
  - ASTHENIA [None]
  - URETERIC STENOSIS [None]
  - FATIGUE [None]
